FAERS Safety Report 7682515-6 (Version None)
Quarter: 2011Q3

REPORT INFORMATION
  Report Type: 
  Country: None (occurrence: None)
  Receive Date: 20110815
  Receipt Date: 20110803
  Transmission Date: 20111222
  Serious: Yes (Other)
  Sender: FDA-Public Use
  Company Number: PHHY2011JP70496

PATIENT
  Age: 49 Year
  Sex: Male

DRUGS (4)
  1. CARBAMAZEPINE [Suspect]
     Dosage: 1800 MG, DAILY
  2. GABAPENTIN [Concomitant]
     Dosage: 1800 MG, UNK
  3. MYSTAN [Concomitant]
     Dosage: 20 MG, UNK
  4. CARBAMAZEPINE [Suspect]
     Indication: EPILEPSY
     Dosage: 1000 MG, DAILY

REACTIONS (5)
  - SOMNOLENCE [None]
  - DISTURBANCE IN ATTENTION [None]
  - GAIT DISTURBANCE [None]
  - HYPONATRAEMIA [None]
  - CONVULSION [None]
